FAERS Safety Report 12156492 (Version 3)
Quarter: 2016Q2

REPORT INFORMATION
  Report Type: Report from Study
  Country: JP (occurrence: JP)
  Receive Date: 20160307
  Receipt Date: 20160420
  Transmission Date: 20160815
  Serious: Yes (Death, Life-Threatening)
  Sender: FDA-Public Use
  Company Number: JP-009507513-1603JPN003421

PATIENT
  Age: 66 Year
  Sex: Male
  Weight: 67 kg

DRUGS (10)
  1. METHYCOBAL [Concomitant]
     Active Substance: METHYLCOBALAMIN
     Indication: PROPHYLAXIS
     Dosage: 1 DF, TID, ALSO REPORTED AS 500 MICROGRAM
     Route: 048
     Dates: start: 20130315
  2. TEMOZOLOMIDE. [Suspect]
     Active Substance: TEMOZOLOMIDE
     Indication: GLIOBLASTOMA MULTIFORME
     Dosage: 75 MG/M2, QD
     Route: 041
     Dates: start: 20130529, end: 20130617
  3. FERON [Suspect]
     Active Substance: INTERFERON BETA
     Indication: PRODUCT USED FOR UNKNOWN INDICATION
     Dosage: 3 MILLION-BILLION UNIT, EVERY OTHER DAY
     Route: 041
     Dates: start: 20130529, end: 20130618
  4. LANSOPRAZOLE. [Concomitant]
     Active Substance: LANSOPRAZOLE
     Indication: PROPHYLAXIS
     Dosage: TOTAL DAILY DOSE 30 MG (DIVIDED DOSE FREQUENCY UNKNOWN), FORMULATION:POR
     Route: 048
     Dates: start: 20130511
  5. AMLODIN (AMLODIPINE BESYLATE) [Concomitant]
     Active Substance: AMLODIPINE BESYLATE
     Dosage: TOTAL DAILY DOSE 5 MG (DIVIDED DOSE FREQUENCY UNKNOWN), FORMULATION:POR
     Route: 048
  6. NU-LOTAN TABLETS 50MG [Concomitant]
     Active Substance: LOSARTAN
     Dosage: TOTAL DAILY DOSE 50 MG (DIVIDED DOSE FREQUENCY UNKNOWN)
     Route: 048
  7. TRAVELMIN (DIPHENHYDRAMINE SALICYLATE (+) DYPHYLLINE) [Concomitant]
     Indication: PROPHYLAXIS
     Dosage: 1 DF, TID
     Route: 048
     Dates: start: 20130511
  8. SIMVASTATIN. [Concomitant]
     Active Substance: SIMVASTATIN
     Dosage: TOTAL DAILY DOSE 5 MG (DIVIDED DOSE FREQUENCY UNKNOWN), FORMULATION: POR
     Route: 048
  9. PRIMPERAN [Concomitant]
     Active Substance: METOCLOPRAMIDE HYDROCHLORIDE
     Dosage: 5 MG, TID, FORMULATION:POR
     Route: 048
     Dates: start: 20130513
  10. EPADEL [Concomitant]
     Active Substance: ICOSAPENT
     Dosage: 900 MG, 2 PACKETS, DIVIDED DOSE FREQUENCY UNKNOWN, FORMULATION: POR
     Route: 048

REACTIONS (2)
  - Disease progression [Fatal]
  - Granulocyte count decreased [Recovered/Resolved]

NARRATIVE: CASE EVENT DATE: 20130618
